FAERS Safety Report 13184324 (Version 1)
Quarter: 2017Q1

REPORT INFORMATION
  Report Type: Spontaneous
  Country: SE (occurrence: SE)
  Receive Date: 20170203
  Receipt Date: 20170203
  Transmission Date: 20170428
  Serious: Yes (Other)
  Sender: FDA-Public Use
  Company Number: SE-SA-2017SA015873

PATIENT
  Age: 62 Year
  Sex: Male

DRUGS (1)
  1. MYOZYME [Suspect]
     Active Substance: ALGLUCOSIDASE ALFA
     Route: 042
     Dates: start: 2013

REACTIONS (3)
  - Sinusitis [Unknown]
  - Infection [Unknown]
  - Cholecystitis [Unknown]
